FAERS Safety Report 9602551 (Version 1)
Quarter: 2013Q4

REPORT INFORMATION
  Report Type: Spontaneous
  Country: US (occurrence: US)
  Receive Date: 20131007
  Receipt Date: 20131007
  Transmission Date: 20140711
  Serious: No
  Sender: FDA-Public Use
  Company Number: US-PFIZER INC-2013284740

PATIENT
  Sex: Male

DRUGS (1)
  1. GLIPIZIDE [Suspect]
     Dosage: 5 MG, 1X/DAY
     Dates: start: 201309

REACTIONS (7)
  - Gastric disorder [Unknown]
  - Nausea [Unknown]
  - Pharyngeal disorder [Unknown]
  - Flatulence [Unknown]
  - Oropharyngeal pain [Unknown]
  - Pain [Unknown]
  - Fatigue [Unknown]
